FAERS Safety Report 15030825 (Version 1)
Quarter: 2018Q2

REPORT INFORMATION
  Report Type: Spontaneous
  Country: US (occurrence: US)
  Receive Date: 20180619
  Receipt Date: 20180619
  Transmission Date: 20180711
  Serious: Yes (Hospitalization)
  Sender: FDA-Public Use
  Company Number: US-ACTELION-A-NJ2018-173785

PATIENT
  Age: 2 Year
  Sex: Female

DRUGS (10)
  1. CLINDAMYCIN. [Concomitant]
     Active Substance: CLINDAMYCIN
  2. RANITIDINE. [Concomitant]
     Active Substance: RANITIDINE
  3. COUMADIN [Concomitant]
     Active Substance: WARFARIN SODIUM
  4. FLOVENT HFA [Concomitant]
     Active Substance: FLUTICASONE PROPIONATE
  5. CLOTRIMAZOLE AND BETAMETHASONE [Concomitant]
     Active Substance: BETAMETHASONE\CLOTRIMAZOLE
  6. FLUCONAZOLE. [Concomitant]
     Active Substance: FLUCONAZOLE
  7. DIURIL [Concomitant]
     Active Substance: CHLOROTHIAZIDE
  8. TRACLEER [Suspect]
     Active Substance: BOSENTAN
     Indication: PULMONARY ARTERIAL HYPERTENSION
     Dosage: 15.625 MG, BID
     Route: 048
     Dates: start: 20170113
  9. BUMETANIDE. [Concomitant]
     Active Substance: BUMETANIDE
  10. REVATIO [Concomitant]
     Active Substance: SILDENAFIL CITRATE

REACTIONS (1)
  - Cardiac operation [Unknown]

NARRATIVE: CASE EVENT DATE: 201805
